FAERS Safety Report 4543861-8 (Version None)
Quarter: 2004Q4

REPORT INFORMATION
  Report Type: 
  Country: None (occurrence: None)
  Receive Date: 20041229
  Receipt Date: 20041229
  Transmission Date: 20050328
  Serious: Yes (Other)
  Sender: FDA-Public Use
  Company Number: None

PATIENT
  Age: 13 Year
  Sex: Female
  Weight: 53.0709 kg

DRUGS (5)
  1. ZITHROMAX [Suspect]
     Indication: TONSILLITIS
     Dosage: 250 MG QD PO
     Route: 048
     Dates: start: 20041121, end: 20041123
  2. FLUOXETINE [Concomitant]
  3. ALLEGRA [Concomitant]
  4. FAMOTIDINE [Concomitant]
  5. RITALIN LA [Concomitant]

REACTIONS (3)
  - DIFFICULTY IN WALKING [None]
  - HYPERKINESIA [None]
  - TREMOR [None]
